FAERS Safety Report 6864876-0 (Version None)
Quarter: 2010Q3

REPORT INFORMATION
  Report Type: 
  Country: None (occurrence: None)
  Receive Date: 20100720
  Receipt Date: 20100708
  Transmission Date: 20110219
  Serious: Yes (Death)
  Sender: FDA-Public Use
  Company Number: APP201000585

PATIENT
  Age: 48 Year
  Sex: Female

DRUGS (4)
  1. HEPARIN SODIUM INJECTION [Suspect]
     Indication: HAEMODIALYSIS
     Dosage: SUBCUTANEOUS
     Route: 058
  2. HEPARIN SODIUM INJECTION [Suspect]
     Indication: PULMONARY EMBOLISM
     Dosage: SUBCUTANEOUS
     Route: 058
  3. HEPARIN SODIUM INJECTION [Suspect]
     Indication: THROMBOSIS PROPHYLAXIS
     Dosage: SUBCUTANEOUS
     Route: 058
  4. LASIX [Concomitant]

REACTIONS (15)
  - ADRENAL INSUFFICIENCY [None]
  - ASCITES [None]
  - CARDIOMEGALY [None]
  - FALL [None]
  - FLUID OVERLOAD [None]
  - GASTROINTESTINAL HAEMORRHAGE [None]
  - HEPARIN-INDUCED THROMBOCYTOPENIA [None]
  - OEDEMA PERIPHERAL [None]
  - PULMONARY CONGESTION [None]
  - PULMONARY EMBOLISM [None]
  - PULMONARY OEDEMA [None]
  - RASH MACULO-PAPULAR [None]
  - SEPTIC SHOCK [None]
  - SKIN NECROSIS [None]
  - VENOUS THROMBOSIS [None]
